FAERS Safety Report 12963889 (Version 1)
Quarter: 2016Q4

REPORT INFORMATION
  Report Type: Spontaneous
  Country: US (occurrence: US)
  Receive Date: 20161122
  Receipt Date: 20161122
  Transmission Date: 20170207
  Serious: Yes (Hospitalization)
  Sender: FDA-Public Use
  Company Number: US-GLAXOSMITHKLINE-US2016171706

PATIENT
  Age: 79 Year
  Sex: Female

DRUGS (10)
  1. FLONASE [Concomitant]
     Active Substance: FLUTICASONE PROPIONATE
  2. METAMUCIL [Concomitant]
     Active Substance: PLANTAGO SEED
  3. VENTOLIN HFA [Suspect]
     Active Substance: ALBUTEROL SULFATE
     Indication: CHRONIC OBSTRUCTIVE PULMONARY DISEASE
     Dosage: 2 PUFF(S), UNK
     Route: 055
  4. ACCUPRIL [Concomitant]
     Active Substance: QUINAPRIL HYDROCHLORIDE
  5. ASPIRIN (BABY) [Concomitant]
     Active Substance: ASPIRIN
  6. XANAX [Concomitant]
     Active Substance: ALPRAZOLAM
  7. ATROVENT [Concomitant]
     Active Substance: IPRATROPIUM BROMIDE
  8. DETROL [Concomitant]
     Active Substance: TOLTERODINE TARTRATE
  9. FISH OIL [Concomitant]
     Active Substance: FISH OIL
  10. ZOCOR [Concomitant]
     Active Substance: SIMVASTATIN

REACTIONS (5)
  - Bronchitis [Recovered/Resolved]
  - Candida infection [Not Recovered/Not Resolved]
  - Oral discomfort [Recovered/Resolved]
  - Tongue discolouration [Not Recovered/Not Resolved]
  - Throat irritation [Recovered/Resolved]

NARRATIVE: CASE EVENT DATE: 201507
